FAERS Safety Report 17180999 (Version 2)
Quarter: 2020Q1

REPORT INFORMATION
  Report Type: Spontaneous
  Country: US (occurrence: US)
  Receive Date: 20191219
  Receipt Date: 20200128
  Transmission Date: 20200409
  Serious: Yes (Other)
  Sender: FDA-Public Use
  Company Number: US-BAUSCH-BL-2019-064914

PATIENT
  Age: 60 Year
  Sex: Male
  Weight: 88.98 kg

DRUGS (3)
  1. PREDNISOLONE SODIUM PHOSPHATE OPHTHALMIC SOLUTION USP 1% [Suspect]
     Active Substance: PREDNISOLONE SODIUM PHOSPHATE
     Indication: PRODUCT USED FOR UNKNOWN INDICATION
     Dosage: IN BOTH EYES
     Route: 047
     Dates: start: 201912
  2. PREDNISOLONE SODIUM PHOSPHATE OPHTHALMIC SOLUTION USP 1% [Suspect]
     Active Substance: PREDNISOLONE SODIUM PHOSPHATE
     Dosage: IN BOTH EYES
     Route: 047
  3. ALREX [Suspect]
     Active Substance: LOTEPREDNOL ETABONATE
     Indication: EYE ALLERGY
     Dosage: SAMPLES, STARTED RECENTLY, TWO DROPS IN THE LEFT EYE BEFORE BEDTIME?PRESCRIPTION DRUG: 09/DEC/2019
     Route: 047
     Dates: start: 2019, end: 201912

REACTIONS (4)
  - Insomnia [Recovered/Resolved]
  - Macular oedema [Unknown]
  - Eye pain [Recovered/Resolved]
  - Product prescribing error [Unknown]

NARRATIVE: CASE EVENT DATE: 2019
